FAERS Safety Report 5508506-9 (Version None)
Quarter: 2007Q4

REPORT INFORMATION
  Report Type: 
  Country: None (occurrence: None)
  Receive Date: 20071031
  Receipt Date: 20070815
  Transmission Date: 20080405
  Serious: No
  Sender: FDA-Public Use
  Company Number: 200711615BWH

PATIENT
  Age: 82 Year
  Sex: Male

DRUGS (6)
  1. NEXAVAR [Suspect]
     Indication: CARCINOID SYNDROME
     Dosage: 400 MG BID ORAL
     Route: 048
     Dates: start: 20070501
  2. NEXAVAR [Suspect]
     Indication: HEPATIC NEOPLASM MALIGNANT
     Dosage: 400 MG BID ORAL
     Route: 048
     Dates: start: 20070501
  3. ENALAPRIL [Concomitant]
  4. MULTI-VITAMIN [Concomitant]
  5. ASPIRIN [Concomitant]
  6. SANDOSTATIN [Concomitant]

REACTIONS (2)
  - GYNAECOMASTIA [None]
  - NIPPLE DISORDER [None]
